FAERS Safety Report 4856259-X (Version None)
Quarter: 2005Q4

REPORT INFORMATION
  Report Type: 
  Country: None (occurrence: None)
  Receive Date: 20051215
  Receipt Date: 20051215
  Transmission Date: 20060501
  Serious: Yes (Other)
  Sender: FDA-Public Use
  Company Number: None

PATIENT
  Age: 13 Year
  Sex: Male

DRUGS (3)
  1. TRILEPTAL [Suspect]
     Indication: AFFECTIVE DISORDER
     Dosage: 600 PO BID
     Route: 048
     Dates: start: 20051209, end: 20051210
  2. TRILEPTAL [Suspect]
     Indication: BIPOLAR DISORDER
     Dosage: 600 PO BID
     Route: 048
     Dates: start: 20051209, end: 20051210
  3. CELEXA [Suspect]
     Indication: BIPOLAR DISORDER
     Dosage: 20 MG PO QD
     Route: 048
     Dates: start: 20051209

REACTIONS (1)
  - RASH [None]
